FAERS Safety Report 19087767 (Version 1)
Quarter: 2021Q2

REPORT INFORMATION
  Report Type: Spontaneous
  Country: US (occurrence: US)
  Receive Date: 20210402
  Receipt Date: 20210402
  Transmission Date: 20210717
  Serious: No
  Sender: FDA-Public Use
  Company Number: US-MYLANLABS-2021M1018765

PATIENT
  Sex: Female
  Weight: 127 kg

DRUGS (1)
  1. ATENOLOL MYLAN [Suspect]
     Active Substance: ATENOLOL
     Indication: HYPERTENSION
     Dosage: 50 MILLIGRAM, QD (DAILY)
     Route: 048

REACTIONS (2)
  - Dental caries [Not Recovered/Not Resolved]
  - Dry mouth [Not Recovered/Not Resolved]
